FAERS Safety Report 11830218 (Version 1)
Quarter: 2015Q4

REPORT INFORMATION
  Report Type: Spontaneous
  Country: US (occurrence: US)
  Receive Date: 20151214
  Receipt Date: 20151214
  Transmission Date: 20160305
  Serious: No
  Sender: FDA-Public Use
  Company Number: US-ASTRAZENECA-2015SF21857

PATIENT
  Age: 54 Year
  Sex: Female
  Weight: 134.7 kg

DRUGS (1)
  1. BYDUREON [Suspect]
     Active Substance: EXENATIDE
     Indication: TYPE 2 DIABETES MELLITUS
     Route: 058
     Dates: start: 201506

REACTIONS (5)
  - Product quality issue [Unknown]
  - Underdose [Recovered/Resolved]
  - Intentional product misuse [Recovered/Resolved]
  - Injection site extravasation [Unknown]
  - Needle issue [Unknown]

NARRATIVE: CASE EVENT DATE: 20151201
